FAERS Safety Report 15782689 (Version 2)
Quarter: 2019Q1

REPORT INFORMATION
  Report Type: Spontaneous
  Country: US (occurrence: US)
  Receive Date: 20190102
  Receipt Date: 20190227
  Transmission Date: 20190417
  Serious: No
  Sender: FDA-Public Use
  Company Number: US-ASTRAZENECA-2018SF69167

PATIENT
  Age: 39 Year
  Sex: Male
  Weight: 181.4 kg

DRUGS (1)
  1. BYDUREON [Suspect]
     Active Substance: EXENATIDE
     Indication: TYPE 2 DIABETES MELLITUS
     Route: 058
     Dates: start: 2018

REACTIONS (3)
  - Intentional device misuse [Recovered/Resolved]
  - Weight decreased [Unknown]
  - Device leakage [Unknown]

NARRATIVE: CASE EVENT DATE: 2018
